FAERS Safety Report 16877834 (Version 2)
Quarter: 2019Q4

REPORT INFORMATION
  Report Type: Spontaneous
  Country: US (occurrence: US)
  Receive Date: 20191002
  Receipt Date: 20191104
  Transmission Date: 20200122
  Serious: No
  Sender: FDA-Public Use
  Company Number: US-BAYER-2019-178578

PATIENT
  Age: 67 Year
  Sex: Female
  Weight: 68 kg

DRUGS (1)
  1. ALEVE PM [Suspect]
     Active Substance: DIPHENHYDRAMINE HYDROCHLORIDE\NAPROXEN SODIUM
     Indication: PAIN
     Dosage: 1 DF
     Route: 048
     Dates: start: 20190929

REACTIONS (2)
  - Feeling abnormal [Unknown]
  - Insomnia [Unknown]

NARRATIVE: CASE EVENT DATE: 20190929
